FAERS Safety Report 24637146 (Version 1)
Quarter: 2024Q4

REPORT INFORMATION
  Report Type: Spontaneous
  Country: US (occurrence: US)
  Receive Date: 20241119
  Receipt Date: 20241119
  Transmission Date: 20250115
  Serious: Yes (Hospitalization, Other)
  Sender: MYLAN
  Company Number: US-MYLANLABS-2024M1101377

PATIENT
  Sex: Female

DRUGS (1)
  1. MEDROXYPROGESTERONE [Suspect]
     Active Substance: MEDROXYPROGESTERONE
     Indication: Contraception
     Dosage: 150 MILLIGRAM, 3 X MONTHS (THREE TIMES IN A MONTH)
     Route: 030
     Dates: start: 2018, end: 2024

REACTIONS (2)
  - Meningioma [Recovered/Resolved]
  - Asthenia [Recovered/Resolved]
